FAERS Safety Report 11170339 (Version 1)
Quarter: 2015Q2

REPORT INFORMATION
  Report Type: Spontaneous
  Country: US (occurrence: US)
  Receive Date: 20150608
  Receipt Date: 20150608
  Transmission Date: 20150821
  Serious: No
  Sender: FDA-Public Use
  Company Number: US-ASTRAZENECA-2015SE52834

PATIENT
  Sex: Female
  Weight: 109.8 kg

DRUGS (1)
  1. BYDUREON [Suspect]
     Active Substance: EXENATIDE
     Dosage: 2 MG 4 COUNT VIAL
     Route: 065
     Dates: start: 20150505

REACTIONS (2)
  - Decreased appetite [Unknown]
  - Weight decreased [Unknown]
